FAERS Safety Report 4618531-8 (Version None)
Quarter: 2005Q1

REPORT INFORMATION
  Report Type: 
  Country: None (occurrence: None)
  Receive Date: 20050323
  Receipt Date: 20050314
  Transmission Date: 20050727
  Serious: Yes (Other)
  Sender: FDA-Public Use
  Company Number: 2005045327

PATIENT
  Sex: Female

DRUGS (3)
  1. DEPO-MEDROL [Suspect]
     Indication: ILL-DEFINED DISORDER
     Dosage: EPIDURAL
     Route: 008
     Dates: start: 20031001
  2. BUPIVACAINE [Concomitant]
     Indication: ILL-DEFINED DISORDER
  3. CLONIDINE [Concomitant]

REACTIONS (5)
  - ABNORMAL SENSATION IN EYE [None]
  - FLUSHING [None]
  - HEADACHE [None]
  - RETINAL HAEMORRHAGE [None]
  - VISION BLURRED [None]
